FAERS Safety Report 10227259 (Version 1)
Quarter: 2014Q2

REPORT INFORMATION
  Report Type: Spontaneous
  Country: ES (occurrence: None)
  Receive Date: 20140606
  Receipt Date: 20140606
  Transmission Date: 20141212
  Serious: Yes (Other)
  Sender: FDA-Public Use
  Company Number: FK201402113

PATIENT
  Age: 63 Year
  Sex: Male

DRUGS (4)
  1. CEFTRIAXON [Suspect]
     Indication: WHIPPLE^S DISEASE
  2. COTRIMOXAZOLE [Suspect]
     Indication: WHIPPLE^S DISEASE
     Route: 048
  3. DOXYCYCLIN [Suspect]
     Indication: WHIPPLE^S DISEASE
  4. HYDROXYCHLOROQUINE [Suspect]

REACTIONS (3)
  - Immune reconstitution inflammatory syndrome [None]
  - Skin lesion [None]
  - Orbital pseudotumour [None]
